FAERS Safety Report 19467305 (Version 1)
Quarter: 2021Q2

REPORT INFORMATION
  Report Type: Spontaneous
  Country: NO (occurrence: NO)
  Receive Date: 20210628
  Receipt Date: 20210628
  Transmission Date: 20210717
  Serious: Yes (Hospitalization)
  Sender: FDA-Public Use
  Company Number: NO-SAMSUNG BIOEPIS-SB-2021-15334

PATIENT
  Age: 18 Year
  Sex: Female

DRUGS (2)
  1. NEOTIGASON [Concomitant]
     Active Substance: ACITRETIN
     Indication: PUSTULAR PSORIASIS
     Dosage: DOSE: 20?25 MG
     Route: 065
  2. FLIXABI [Suspect]
     Active Substance: INFLIXIMAB
     Indication: PUSTULAR PSORIASIS
     Dosage: FIRST DOSE 11?JAN?2021, SECOND DOSE 26?JAN?2021, THIRD AND LAST DOSE 02?MAR?2021.?FORM OF ADMIN: POW
     Route: 065
     Dates: start: 20210111, end: 20210302

REACTIONS (4)
  - Vertigo [Recovered/Resolved]
  - Presyncope [Recovered/Resolved]
  - Atrioventricular block second degree [Recovered/Resolved]
  - Product use in unapproved indication [Unknown]

NARRATIVE: CASE EVENT DATE: 202101
